FAERS Safety Report 13197667 (Version 1)
Quarter: 2017Q1

REPORT INFORMATION
  Report Type: Spontaneous
  Country: US (occurrence: US)
  Receive Date: 20170208
  Receipt Date: 20170208
  Transmission Date: 20170428
  Serious: Yes (Death)
  Sender: FDA-Public Use
  Company Number: US-BAYER-2017-024069

PATIENT
  Sex: Female

DRUGS (1)
  1. BAYER ASPIRIN [Suspect]
     Active Substance: ASPIRIN
     Indication: PAIN
     Dosage: UNK
     Route: 048

REACTIONS (1)
  - Death [Fatal]
